FAERS Safety Report 8082724-0 (Version None)
Quarter: 2012Q1

REPORT INFORMATION
  Report Type: 
  Country: None (occurrence: None)
  Receive Date: 20120127
  Receipt Date: 20110224
  Transmission Date: 20120608
  Serious: No
  Sender: FDA-Public Use
  Company Number: US-ABBOTT-11P-163-0708373-00

PATIENT
  Sex: Female
  Weight: 77.18 kg

DRUGS (4)
  1. HUMIRA [Suspect]
     Indication: PSORIATIC ARTHROPATHY
     Route: 058
     Dates: start: 20101220
  2. LISINOPRIL [Concomitant]
     Indication: HYPERTENSION
     Route: 048
  3. VITAMIN D [Concomitant]
     Indication: PRODUCT USED FOR UNKNOWN INDICATION
     Route: 048
  4. MOTRIN [Concomitant]
     Indication: PRODUCT USED FOR UNKNOWN INDICATION

REACTIONS (10)
  - COUGH [None]
  - UPPER RESPIRATORY TRACT INFECTION [None]
  - INFLUENZA [None]
  - LYMPHADENOPATHY [None]
  - PYREXIA [None]
  - ABDOMINAL DISCOMFORT [None]
  - MUCOSAL DISCOLOURATION [None]
  - PAIN [None]
  - PULMONARY CONGESTION [None]
  - OROPHARYNGEAL PAIN [None]
